FAERS Safety Report 10172473 (Version 2)
Quarter: 2014Q4

REPORT INFORMATION
  Report Type: Report from Study
  Country: BR (occurrence: BR)
  Receive Date: 20140515
  Receipt Date: 20141103
  Transmission Date: 20150528
  Serious: Yes (Death, Hospitalization, Other)
  Sender: FDA-Public Use
  Company Number: BR-BAYER-2014-067201

PATIENT
  Age: 57 Year
  Sex: Male
  Weight: 44.44 kg

DRUGS (4)
  1. HEPAMERZ [ORNITHINE ASPARTATE] [Concomitant]
     Indication: ENCEPHALOPATHY
     Dosage: UNK
     Route: 048
  2. PROPRANOLOL [Concomitant]
     Active Substance: PROPRANOLOL\PROPRANOLOL HYDROCHLORIDE
     Indication: VARICES OESOPHAGEAL
     Dosage: 2 DF, QD
     Route: 048
     Dates: start: 2008
  3. OMEPRAZOLE. [Concomitant]
     Active Substance: OMEPRAZOLE
     Indication: PROPHYLAXIS
     Dosage: 1 DF, QD
     Route: 048
  4. NEXAVAR [Suspect]
     Active Substance: SORAFENIB
     Indication: HEPATIC NEOPLASM
     Dosage: 2 DF, BID
     Route: 048
     Dates: start: 20131219

REACTIONS (12)
  - Therapeutic embolisation [Recovered/Resolved]
  - Pollakiuria [None]
  - Metastases to liver [None]
  - Peripheral swelling [Recovered/Resolved]
  - Encephalopathy [Not Recovered/Not Resolved]
  - Dermal cyst [Not Recovered/Not Resolved]
  - Hepatic neoplasm [Fatal]
  - Cyst rupture [Not Recovered/Not Resolved]
  - Yellow skin [Not Recovered/Not Resolved]
  - Encephalopathy [Recovered/Resolved]
  - Therapeutic embolisation [Recovered/Resolved]
  - Blood bilirubin abnormal [None]

NARRATIVE: CASE EVENT DATE: 201312
